FAERS Safety Report 12075026 (Version 1)
Quarter: 2016Q1

REPORT INFORMATION
  Report Type: Spontaneous
  Country: US (occurrence: US)
  Receive Date: 20160212
  Receipt Date: 20160212
  Transmission Date: 20160526
  Serious: No
  Sender: FDA-Public Use
  Company Number: US-GLAXOSMITHKLINE-US2016019614

PATIENT
  Age: 85 Year
  Sex: Female

DRUGS (1)
  1. ABREVA [Suspect]
     Active Substance: DOCOSANOL
     Indication: NASAL ULCER
     Dosage: UNK
     Dates: start: 20160201, end: 20160209

REACTIONS (2)
  - Product use issue [Unknown]
  - Drug ineffective [Unknown]
